FAERS Safety Report 21338159 (Version 3)
Quarter: 2022Q4

REPORT INFORMATION
  Report Type: Report from Study
  Country: US (occurrence: US)
  Receive Date: 20220915
  Receipt Date: 20221124
  Transmission Date: 20230112
  Serious: Yes (Other)
  Sender: FDA-Public Use
  Company Number: US-HBP-2022US024631

PATIENT
  Age: 38 Year
  Sex: Male

DRUGS (3)
  1. TRUSELTIQ [Suspect]
     Active Substance: INFIGRATINIB
     Indication: Bone cancer
     Dosage: 125 MILLIGRAM, QD, FOR 21 DAYS THEN 7 DAYS OFF
     Route: 048
     Dates: start: 202112, end: 202203
  2. TRUSELTIQ [Suspect]
     Active Substance: INFIGRATINIB
     Dosage: 100 MILLIGRAM, QD
     Route: 048
     Dates: start: 202203, end: 202208
  3. TRUSELTIQ [Suspect]
     Active Substance: INFIGRATINIB
     Dosage: 50 MILLIGRAM, QD
     Route: 048
     Dates: start: 202208

REACTIONS (10)
  - Ulcerative keratitis [Unknown]
  - Skin ulcer [Not Recovered/Not Resolved]
  - Sleep disorder [Unknown]
  - Intra-abdominal fluid collection [Recovering/Resolving]
  - Product dose omission issue [Unknown]
  - Off label use [Not Recovered/Not Resolved]
  - Depression [Unknown]
  - Vision blurred [Unknown]
  - Arthralgia [Recovered/Resolved]
  - Stomatitis [Unknown]

NARRATIVE: CASE EVENT DATE: 20220101
